FAERS Safety Report 9495490 (Version 4)
Quarter: 2013Q4

REPORT INFORMATION
  Report Type: Report from Study
  Country: US (occurrence: US)
  Receive Date: 20130903
  Receipt Date: 20131106
  Transmission Date: 20140711
  Serious: Yes (Hospitalization)
  Sender: FDA-Public Use
  Company Number: US-ACTELION-A-NJ2013-80275

PATIENT
  Age: 51 Year
  Sex: Female

DRUGS (7)
  1. TRACLEER [Suspect]
     Indication: PULMONARY ARTERIAL HYPERTENSION
     Dosage: 125 MG, BID
     Route: 048
     Dates: start: 2005
  2. TRACLEER [Suspect]
     Dosage: 62.5 MG, BID
     Route: 048
     Dates: start: 2004, end: 2006
  3. MULTIVITAMINS [Concomitant]
     Dosage: 500 MG, QD
     Route: 048
  4. VITAMIN C [Concomitant]
     Dosage: 500 MG, QD
     Route: 048
  5. ASPIRIN [Concomitant]
     Dosage: 81 MG, QD
     Route: 048
  6. FAMOTIDINE [Concomitant]
     Dosage: 20 MG, BID
     Dates: start: 20130713
  7. DOCUSATE SODIUM [Concomitant]
     Dosage: 100 MG, BID
     Dates: start: 20130713

REACTIONS (4)
  - Cholelithiasis [Recovering/Resolving]
  - Supraventricular tachycardia [Recovered/Resolved]
  - Heart rate increased [Recovered/Resolved]
  - Cardiac disorder [Unknown]
